FAERS Safety Report 25677617 (Version 2)
Quarter: 2025Q3

REPORT INFORMATION
  Report Type: Spontaneous
  Country: EU (occurrence: EU)
  Receive Date: 20250813
  Receipt Date: 20250923
  Transmission Date: 20251021
  Serious: Yes (Hospitalization, Disabling, Other)
  Sender: MSN LABORATORIES PRIVATE LIMITED
  Company Number: None

PATIENT

DRUGS (29)
  1. PREGABALIN [Suspect]
     Active Substance: PREGABALIN
     Indication: Painful ejaculation
     Dosage: 25 MILLIGRAM, ONCE A DAY AT NIGHT
     Route: 065
  2. SILDENAFIL [Suspect]
     Active Substance: SILDENAFIL
     Indication: Sexual dysfunction
     Dosage: 50 MG OF SILDENAFIL BEFORE INTERCOURSE
     Route: 065
  3. SILDENAFIL [Suspect]
     Active Substance: SILDENAFIL
     Indication: Neuropathy peripheral
  4. SILDENAFIL [Suspect]
     Active Substance: SILDENAFIL
     Indication: Painful ejaculation
  5. ALPRAZOLAM [Suspect]
     Active Substance: ALPRAZOLAM
     Indication: Anxiety
     Dosage: 0.5 MG, PER DAY
     Route: 065
  6. CIPROFLOXACIN [Suspect]
     Active Substance: CIPROFLOXACIN
     Indication: Painful ejaculation
     Dosage: 1000 MG, ONCE DAILY (2 X 500 MG)
     Route: 048
  7. DICLOFENAC [Suspect]
     Active Substance: DICLOFENAC
     Indication: Painful ejaculation
     Dosage: 50 MILLIGRAM, BID
     Route: 054
  8. DICLOFENAC [Suspect]
     Active Substance: DICLOFENAC
     Dosage: 50 MG, 2X PER DAY
  9. ESCITALOPRAM [Suspect]
     Active Substance: ESCITALOPRAM OXALATE
     Indication: Depression
     Dosage: 10 MILLIGRAM, DAILY
     Route: 048
  10. ESCITALOPRAM [Suspect]
     Active Substance: ESCITALOPRAM OXALATE
     Indication: Depression
  11. LEVOFLOXACIN [Suspect]
     Active Substance: LEVOFLOXACIN
     Indication: Painful ejaculation
     Dosage: 1000 MG, ONCE DAILY (2 X 500 MG)
     Route: 048
  12. LEVOFLOXACIN [Suspect]
     Active Substance: LEVOFLOXACIN
     Indication: Perineal pain
  13. LEVOFLOXACIN [Suspect]
     Active Substance: LEVOFLOXACIN
     Indication: Depression
  14. LIDOCAINE [Suspect]
     Active Substance: LIDOCAINE
     Indication: Painful ejaculation
     Route: 042
  15. LIDOCAINE [Suspect]
     Active Substance: LIDOCAINE
     Indication: Painful ejaculation
  16. MAGNESIUM SULFATE [Suspect]
     Active Substance: MAGNESIUM SULFATE
     Indication: Painful ejaculation
     Route: 065
  17. MAGNESIUM SULFATE [Suspect]
     Active Substance: MAGNESIUM SULFATE
     Indication: Painful ejaculation
  18. METAMIZOLE [Suspect]
     Active Substance: METAMIZOLE
     Indication: Painful ejaculation
     Route: 065
  19. METAMIZOLE [Suspect]
     Active Substance: METAMIZOLE
     Indication: Painful ejaculation
  20. MIANSERIN [Suspect]
     Active Substance: MIANSERIN
     Indication: Depression
     Dosage: 30 MG QD
     Route: 048
  21. MIANSERIN [Suspect]
     Active Substance: MIANSERIN
     Indication: Depression
  22. MIANSERIN [Suspect]
     Active Substance: MIANSERIN
     Indication: Anxiety
  23. TAMSULOSIN [Suspect]
     Active Substance: TAMSULOSIN
     Indication: Painful ejaculation
     Dosage: 0.4 MG, HS (SUSTAINED RELEASE) TAMSULOSIN SR?PER NIGHT
     Route: 042
  24. TAMSULOSIN [Suspect]
     Active Substance: TAMSULOSIN
     Indication: Perineal pain
  25. VALPROIC ACID [Suspect]
     Active Substance: VALPROIC ACID
     Indication: Painful ejaculation
     Route: 042
  26. VALPROIC ACID [Suspect]
     Active Substance: VALPROIC ACID
     Indication: Painful ejaculation
  27. MELATONIN [Concomitant]
     Active Substance: MELATONIN
     Indication: Insomnia
     Route: 065
  28. MELATONIN [Concomitant]
     Active Substance: MELATONIN
     Indication: Depression
  29. VORTIOXETINE [Concomitant]
     Active Substance: VORTIOXETINE
     Route: 065

REACTIONS (10)
  - Burning sensation [Not Recovered/Not Resolved]
  - Drug-disease interaction [Recovered/Resolved]
  - Perineal pain [Recovered/Resolved with Sequelae]
  - Condition aggravated [Recovered/Resolved]
  - Painful ejaculation [Recovered/Resolved]
  - Groin pain [Not Recovered/Not Resolved]
  - Anxiety [Unknown]
  - Pain [Recovered/Resolved]
  - Product use in unapproved indication [Unknown]
  - Product prescribing error [Unknown]
